FAERS Safety Report 24680774 (Version 1)
Quarter: 2024Q4

REPORT INFORMATION
  Report Type: Spontaneous
  Country: US (occurrence: US)
  Receive Date: 20241129
  Receipt Date: 20241129
  Transmission Date: 20250115
  Serious: No
  Sender: MERCK
  Company Number: US-009507513-2411USA009138

PATIENT
  Sex: Male

DRUGS (1)
  1. BELSOMRA [Suspect]
     Active Substance: SUVOREXANT
     Dosage: 7 MILLIGRAM
     Route: 048

REACTIONS (3)
  - Surgery [Unknown]
  - Wrong technique in product usage process [Unknown]
  - Product availability issue [Unknown]
